FAERS Safety Report 12853332 (Version 1)
Quarter: 2016Q4

REPORT INFORMATION
  Report Type: Spontaneous
  Country: GB (occurrence: GB)
  Receive Date: 20161017
  Receipt Date: 20161017
  Transmission Date: 20170207
  Serious: Yes (Other)
  Sender: FDA-Public Use
  Company Number: GB-ROCHE-1842700

PATIENT
  Age: 43 Year
  Sex: Female
  Weight: 91 kg

DRUGS (5)
  1. CAPSAICIN. [Concomitant]
     Active Substance: CAPSAICIN
     Dosage: CUMULATIVE DOSE 783.833333
     Route: 065
     Dates: start: 20160321, end: 20160901
  2. COCODAMOL [Concomitant]
     Active Substance: ACETAMINOPHEN\CODEINE PHOSPHATE
     Indication: PAIN
     Route: 065
     Dates: start: 20160215
  3. NORTRIPTYLINE [Concomitant]
     Active Substance: NORTRIPTYLINE
     Dosage: TAKE 1-3 AT NIGHT
     Route: 065
     Dates: start: 20160321, end: 20160901
  4. ORLISTAT [Suspect]
     Active Substance: ORLISTAT
     Indication: PRODUCT USED FOR UNKNOWN INDICATION
     Route: 065
     Dates: start: 20160915
  5. PARACETAMOL [Concomitant]
     Active Substance: ACETAMINOPHEN
     Dosage: TAKE 1 OR 2 4 TIMES/DAY
     Route: 065
     Dates: start: 20150213, end: 20160901

REACTIONS (3)
  - Nightmare [Recovered/Resolved]
  - Dyspnoea [Unknown]
  - Anxiety [Recovering/Resolving]

NARRATIVE: CASE EVENT DATE: 20161003
